FAERS Safety Report 14633695 (Version 4)
Quarter: 2019Q2

REPORT INFORMATION
  Report Type: Report from Study
  Country: DE (occurrence: DE)
  Receive Date: 20180314
  Receipt Date: 20190509
  Transmission Date: 20190711
  Serious: Yes (Hospitalization)
  Sender: FDA-Public Use
  Company Number: DE-ROCHE-2083081

PATIENT
  Age: 44 Year
  Sex: Male

DRUGS (8)
  1. TOCILIZUMAB. [Suspect]
     Active Substance: TOCILIZUMAB
     Indication: RHEUMATOID ARTHRITIS
     Route: 058
     Dates: start: 20170315
  2. TOCILIZUMAB. [Suspect]
     Active Substance: TOCILIZUMAB
     Dosage: 162 MG, UNK
     Route: 058
     Dates: start: 201703
  3. CIMZIA [Suspect]
     Active Substance: CERTOLIZUMAB PEGOL
     Indication: PRODUCT USED FOR UNKNOWN INDICATION
     Route: 065
     Dates: start: 201208, end: 20170302
  4. METHOTREXAT [METHOTREXATE] [Suspect]
     Active Substance: METHOTREXATE
     Route: 065
     Dates: start: 2016, end: 201702
  5. LANTAREL [Suspect]
     Active Substance: METHOTREXATE SODIUM
     Indication: PRODUCT USED FOR UNKNOWN INDICATION
     Route: 065
     Dates: start: 201006
  6. METHOTREXAT [METHOTREXATE] [Suspect]
     Active Substance: METHOTREXATE
     Route: 065
     Dates: end: 201606
  7. HUMIRA [Suspect]
     Active Substance: ADALIMUMAB
     Indication: RHEUMATOID ARTHRITIS
     Route: 058
     Dates: start: 201108, end: 201208
  8. METHOTREXAT [METHOTREXATE] [Suspect]
     Active Substance: METHOTREXATE
     Indication: RHEUMATOID ARTHRITIS
     Route: 065
     Dates: start: 2016, end: 201702

REACTIONS (4)
  - Bladder cancer recurrent [Unknown]
  - Coronary artery disease [Unknown]
  - Bladder transitional cell carcinoma [Unknown]
  - Folliculitis [Unknown]

NARRATIVE: CASE EVENT DATE: 20150401
